FAERS Safety Report 4931274-6 (Version None)
Quarter: 2006Q1

REPORT INFORMATION
  Report Type: 
  Country: None (occurrence: None)
  Receive Date: 20060302
  Receipt Date: 20050414
  Transmission Date: 20060701
  Serious: Yes (Hospitalization)
  Sender: FDA-Public Use
  Company Number: US-MERCK-0504USA02753

PATIENT
  Age: 52 Year
  Sex: Female
  Weight: 118 kg

DRUGS (4)
  1. VIOXX [Suspect]
     Indication: INFLAMMATION
     Route: 048
     Dates: start: 20020401, end: 20040901
  2. CELEBREX [Concomitant]
     Route: 065
     Dates: start: 20020101, end: 20030101
  3. SOMA [Concomitant]
     Route: 065
  4. VICODIN [Concomitant]
     Route: 065

REACTIONS (3)
  - BACK DISORDER [None]
  - PRESCRIBED OVERDOSE [None]
  - THROMBOSIS [None]
